FAERS Safety Report 14303787 (Version 1)
Quarter: 2017Q4

REPORT INFORMATION
  Report Type: Spontaneous
  Country: ES (occurrence: ES)
  Receive Date: 20171219
  Receipt Date: 20171219
  Transmission Date: 20180321
  Serious: Yes (Other)
  Sender: FDA-Public Use
  Company Number: ES-OTSUKA-EU-2012-10143

PATIENT
  Age: 62 Year
  Sex: Male
  Weight: 80 kg

DRUGS (9)
  1. LEVOFLOXACIN. [Suspect]
     Active Substance: LEVOFLOXACIN
     Indication: PNEUMONIA
     Dosage: DATE OF LAST ADMINISTRATION:25MAR12.
     Route: 042
     Dates: start: 20120325
  2. ABILIFY [Suspect]
     Active Substance: ARIPIPRAZOLE
     Indication: PRODUCT USED FOR UNKNOWN INDICATION
     Dosage: 10 UNK, QD
     Route: 048
  3. LEVOFLOXACINO [Interacting]
     Active Substance: LEVOFLOXACIN
     Indication: PNEUMONIA
     Dosage: 750 UNK, UNK
     Route: 042
     Dates: start: 20120325, end: 20120325
  4. FUROSEMIDE. [Interacting]
     Active Substance: FUROSEMIDE
     Dosage: DOSE:120
     Route: 042
     Dates: start: 20120316
  5. OMEPRAZOL [Interacting]
     Active Substance: OMEPRAZOLE
     Indication: PRODUCT USED FOR UNKNOWN INDICATION
     Dosage: 20 UNK, QD
     Route: 048
     Dates: start: 20120320, end: 20120325
  6. OMEPRAZOLE. [Interacting]
     Active Substance: OMEPRAZOLE
     Dosage: 3 MG
     Route: 048
     Dates: start: 20120320, end: 20120325
  7. SEGURIL 20 MG SOLUCION INYECTABLE EN AMPOLLAS, 5 AMPOLLAS DE 2 ML [Interacting]
     Active Substance: FUROSEMIDE
     Indication: PRODUCT USED FOR UNKNOWN INDICATION
     Dosage: 120 UNK, QD
     Route: 042
     Dates: start: 20120316
  8. TRAZODONE HYDROCHLORIDE. [Suspect]
     Active Substance: TRAZODONE HYDROCHLORIDE
     Dosage: DOSE100MG  DEPRAX 100MG
     Route: 048
  9. DEPRAX 100 MG COMPRIMIDOS RECUBIERTOS CON PELICULA , 30 COMPRIMIDOS (TRAZODONE HYDROCHLORIDE) [Interacting]
     Active Substance: TRAZODONE HYDROCHLORIDE
     Indication: PRODUCT USED FOR UNKNOWN INDICATION
     Dosage: 100 UNK, QD
     Route: 048

REACTIONS (2)
  - Seizure [Recovered/Resolved]
  - Drug interaction [Unknown]

NARRATIVE: CASE EVENT DATE: 20120325
